FAERS Safety Report 5795198-7 (Version None)
Quarter: 2008Q2

REPORT INFORMATION
  Report Type: 
  Country: None (occurrence: None)
  Receive Date: 20080630
  Receipt Date: 20080619
  Transmission Date: 20081010
  Serious: Yes (Other)
  Sender: FDA-Public Use
  Company Number: GB-AVENTIS-200815890GDDC

PATIENT
  Age: 68 Year
  Sex: Male

DRUGS (1)
  1. TAXOTERE [Suspect]
     Dosage: DOSE: UNK
     Route: 042
     Dates: start: 20070601, end: 20070701

REACTIONS (3)
  - AMNESIA [None]
  - CEREBRAL HAEMORRHAGE [None]
  - VISUAL DISTURBANCE [None]
